FAERS Safety Report 5735846-0 (Version None)
Quarter: 2008Q2

REPORT INFORMATION
  Report Type: 
  Country: None (occurrence: None)
  Receive Date: 20080513
  Receipt Date: 20080502
  Transmission Date: 20081010
  Serious: Yes (Hospitalization)
  Sender: FDA-Public Use
  Company Number: US-BAYER-200821804NA

PATIENT
  Age: 59 Year
  Sex: Female

DRUGS (2)
  1. ULTRAVIST 300 [Suspect]
     Indication: COMPUTERISED TOMOGRAM ABDOMEN
     Dosage: TOTAL DAILY DOSE: 100 ML  UNIT DOSE: 100 ML
     Route: 042
     Dates: start: 20080414, end: 20080414
  2. ORAL CONTRAST [Concomitant]
     Indication: COMPUTERISED TOMOGRAM ABDOMEN

REACTIONS (6)
  - BLOOD PRESSURE DECREASED [None]
  - DYSARTHRIA [None]
  - FAECAL INCONTINENCE [None]
  - FEELING HOT [None]
  - LIP OEDEMA [None]
  - VOMITING [None]
